FAERS Safety Report 7092062-0 (Version None)
Quarter: 2010Q4

REPORT INFORMATION
  Report Type: 
  Country: None (occurrence: None)
  Receive Date: 20101109
  Receipt Date: 20101101
  Transmission Date: 20110411
  Serious: No
  Sender: FDA-Public Use
  Company Number: US-B.I. PHARMACEUTICALS,INC./RIDGEFIELD-2010-BP-12296BP

PATIENT
  Sex: Female

DRUGS (4)
  1. SPIRIVA [Suspect]
     Indication: BRONCHIECTASIS
     Dosage: 18 MCG
     Route: 055
     Dates: start: 20080101
  2. CIPROFLOXACIN [Concomitant]
     Indication: BRONCHIECTASIS
  3. AMOXICILLIN [Concomitant]
     Indication: BRONCHIECTASIS
  4. ALBUTEROL [Concomitant]
     Indication: BRONCHIECTASIS

REACTIONS (2)
  - DYSPNOEA [None]
  - NASOPHARYNGITIS [None]
